FAERS Safety Report 13164708 (Version 2)
Quarter: 2017Q1

REPORT INFORMATION
  Report Type: Spontaneous
  Country: JP (occurrence: JP)
  Receive Date: 20170130
  Receipt Date: 20170202
  Transmission Date: 20170428
  Serious: Yes (Other)
  Sender: FDA-Public Use
  Company Number: JP-MYLANLABS-2017M1004956

PATIENT

DRUGS (8)
  1. CLARITHROMYCIN MYLAN [Suspect]
     Active Substance: CLARITHROMYCIN
     Dosage: 400 MG, BID
     Route: 048
     Dates: start: 20170118
  2. ISONIAZID. [Concomitant]
     Active Substance: ISONIAZID
     Dosage: UNK, BID
     Dates: start: 20170118
  3. ETHAMBUTOL HYDROCHLORIDE. [Concomitant]
     Active Substance: ETHAMBUTOL HYDROCHLORIDE
     Indication: MYCOBACTERIUM AVIUM COMPLEX INFECTION
     Dosage: 125 MG, QD
     Route: 048
     Dates: start: 20161220, end: 20170111
  4. RIFAMPICIN [Concomitant]
     Active Substance: RIFAMPIN
     Dosage: 150 MG, BID
     Route: 048
     Dates: start: 20170118
  5. ISONIAZID. [Concomitant]
     Active Substance: ISONIAZID
     Indication: MYCOBACTERIUM AVIUM COMPLEX INFECTION
     Dosage: UNK, BID
     Route: 048
     Dates: start: 20161220, end: 20170111
  6. RIFAMPICIN [Concomitant]
     Active Substance: RIFAMPIN
     Indication: MYCOBACTERIUM AVIUM COMPLEX INFECTION
     Dosage: 150 MG, BID
     Route: 048
     Dates: start: 20161220, end: 20170111
  7. CLARITHROMYCIN MYLAN [Suspect]
     Active Substance: CLARITHROMYCIN
     Indication: MYCOBACTERIUM AVIUM COMPLEX INFECTION
     Dosage: 400 MG, BID
     Route: 048
     Dates: start: 20161220, end: 20170111
  8. ETHAMBUTOL HYDROCHLORIDE. [Concomitant]
     Active Substance: ETHAMBUTOL HYDROCHLORIDE
     Dosage: 125 MG, QD
     Dates: start: 20170118

REACTIONS (1)
  - Hypoglycaemia [Recovered/Resolved]

NARRATIVE: CASE EVENT DATE: 20170110
